FAERS Safety Report 22197308 (Version 1)
Quarter: 2023Q2

REPORT INFORMATION
  Report Type: Report from Study
  Country: US (occurrence: US)
  Receive Date: 20230411
  Receipt Date: 20230411
  Transmission Date: 20230721
  Serious: Yes (Death, Other)
  Sender: FDA-Public Use
  Company Number: US-TAKEDA-2023TUS036710

PATIENT
  Age: 63 Year
  Sex: Female

DRUGS (2)
  1. IXAZOMIB [Suspect]
     Active Substance: IXAZOMIB
     Indication: Plasma cell myeloma in remission
     Dosage: 2.3 MILLIGRAM
     Route: 048
     Dates: start: 202302
  2. IXAZOMIB [Suspect]
     Active Substance: IXAZOMIB
     Indication: Neoplasm malignant

REACTIONS (1)
  - Death [Fatal]

NARRATIVE: CASE EVENT DATE: 20230311
